FAERS Safety Report 7463594-8 (Version None)
Quarter: 2011Q1

REPORT INFORMATION
  Report Type: 
  Country: None (occurrence: None)
  Receive Date: 20110302
  Receipt Date: 20100909
  Transmission Date: 20110831
  Serious: Yes (Disabling)
  Sender: FDA-Public Use
  Company Number: 163-21880-10081626

PATIENT
  Age: 65 Year
  Sex: Male
  Weight: 129.2752 kg

DRUGS (2)
  1. ZOMETA [Concomitant]
  2. REVLIMID [Suspect]
     Indication: MULTIPLE MYELOMA
     Dosage: 10 MG, 1 IN 1 D, PO
     Route: 048
     Dates: start: 20100304

REACTIONS (8)
  - COUGH [None]
  - DIARRHOEA [None]
  - ABDOMINAL PAIN [None]
  - INSOMNIA [None]
  - ANXIETY [None]
  - DIZZINESS [None]
  - NAUSEA [None]
  - DISTURBANCE IN ATTENTION [None]
